FAERS Safety Report 16124151 (Version 2)
Quarter: 2019Q4

REPORT INFORMATION
  Report Type: Spontaneous
  Country: US (occurrence: US)
  Receive Date: 20190327
  Receipt Date: 20191021
  Transmission Date: 20200122
  Serious: No
  Sender: FDA-Public Use
  Company Number: US-IBSA PHARMA-TIR-2018-1216

PATIENT
  Age: 63 Year
  Sex: Female
  Weight: 59.02 kg

DRUGS (4)
  1. TIROSINT [Suspect]
     Active Substance: LEVOTHYROXINE SODIUM
     Dosage: 13MCG DAILY
     Route: 048
     Dates: start: 201903, end: 201904
  2. TIROSINT [Suspect]
     Active Substance: LEVOTHYROXINE SODIUM
     Indication: HYPOTHYROIDISM
     Dosage: 13MCG DAILY
     Route: 048
     Dates: start: 201901, end: 201902
  3. TIROSINT [Suspect]
     Active Substance: LEVOTHYROXINE SODIUM
     Dosage: 13MCG DAILY
     Route: 048
     Dates: start: 201904, end: 201904
  4. TIROSINT [Suspect]
     Active Substance: LEVOTHYROXINE SODIUM
     Indication: HYPOTHYROIDISM
     Dosage: 13MCG DAILY
     Route: 048
     Dates: start: 201807, end: 20181125

REACTIONS (10)
  - Alopecia [Unknown]
  - Vomiting [Recovering/Resolving]
  - Dysuria [Recovering/Resolving]
  - Decreased appetite [Recovering/Resolving]
  - Neck pain [Recovering/Resolving]
  - Feeling abnormal [Recovering/Resolving]
  - Coeliac disease [Recovering/Resolving]
  - Groin pain [Recovering/Resolving]
  - Retching [Recovering/Resolving]
  - Pain in extremity [Recovering/Resolving]

NARRATIVE: CASE EVENT DATE: 201810
